FAERS Safety Report 18322650 (Version 2)
Quarter: 2020Q4

REPORT INFORMATION
  Report Type: Report from Study
  Country: MX (occurrence: MX)
  Receive Date: 20200929
  Receipt Date: 20201003
  Transmission Date: 20210113
  Serious: No
  Sender: FDA-Public Use
  Company Number: NVSC2020MX262321

PATIENT
  Sex: Female
  Weight: 62 kg

DRUGS (14)
  1. COSENTYX [Suspect]
     Active Substance: SECUKINUMAB
     Dosage: 150 MG(WEEKLY FOR 4 WEEKS)
     Route: 058
     Dates: start: 201907, end: 201908
  2. REVENOX [Concomitant]
     Indication: SLEEP DISORDER
     Dosage: 2 DF, QD
     Route: 048
  3. COSENTYX [Suspect]
     Active Substance: SECUKINUMAB
     Dosage: UNK
     Route: 065
     Dates: start: 202003
  4. COSENTYX [Suspect]
     Active Substance: SECUKINUMAB
     Dosage: 150 MG, QMO
     Route: 058
     Dates: start: 201908, end: 202003
  5. COSENTYX [Suspect]
     Active Substance: SECUKINUMAB
     Dosage: 150 MG(WEEKLY FOR 4 WEEKS)
     Route: 058
  6. EPIVAL [Concomitant]
     Active Substance: DIVALPROEX SODIUM
     Indication: VASCULITIS
     Dosage: 1 DF, QD
     Route: 048
  7. BRINTELLIX [Concomitant]
     Active Substance: VORTIOXETINE HYDROBROMIDE
     Indication: VASCULITIS
     Dosage: 1 DF, QD
     Route: 048
     Dates: start: 2014
  8. COSENTYX [Suspect]
     Active Substance: SECUKINUMAB
     Indication: ANKYLOSING SPONDYLITIS
     Dosage: 1 DF (150 MG), QW (FOR 4 WEEKS THEN MONTHLY)
     Route: 058
     Dates: start: 201908
  9. ACLASTA [Suspect]
     Active Substance: ZOLEDRONIC ACID
     Indication: OSTEOPENIA
     Dosage: 1 DF, UNKNOWN
     Route: 042
  10. CORTISONE [Concomitant]
     Active Substance: CORTISONE
     Indication: VASCULITIS
     Dosage: UNK
     Route: 065
  11. AZULFIDINE [Concomitant]
     Active Substance: SULFASALAZINE
     Indication: SPONDYLITIS
  12. AZULFIDINE [Concomitant]
     Active Substance: SULFASALAZINE
     Indication: VASCULITIS
     Dosage: 1 DF, BID
     Route: 048
     Dates: start: 201408
  13. RIVOTRIL [Concomitant]
     Active Substance: CLONAZEPAM
     Indication: SLEEP DISORDER
     Dosage: 5 DF, QD
     Route: 048
     Dates: start: 2014
  14. CORTISONE [Concomitant]
     Active Substance: CORTISONE
     Dosage: 0.5 DF, QD (2.5 MG)
     Route: 048

REACTIONS (1)
  - Weight increased [Not Recovered/Not Resolved]
